FAERS Safety Report 6076256-9 (Version None)
Quarter: 2009Q1

REPORT INFORMATION
  Report Type: 
  Country: None (occurrence: None)
  Receive Date: 20090210
  Receipt Date: 20090130
  Transmission Date: 20090719
  Serious: Yes (Hospitalization)
  Sender: FDA-Public Use
  Company Number: 2009-00458

PATIENT
  Age: 66 Year
  Sex: Male

DRUGS (5)
  1. VELCADE [Suspect]
     Indication: MULTIPLE MYELOMA
     Dosage: 2 MG, INTRAVENOUS
     Route: 042
     Dates: start: 20080601, end: 20080701
  2. THALIDOMIDE [Suspect]
     Indication: MULTIPLE MYELOMA
     Dosage: 100 MG, ORAL
     Route: 048
     Dates: start: 20080601, end: 20080701
  3. ATENOLOL [Concomitant]
  4. CHLORTALIDONE     (CHLORTALIDONE) [Concomitant]
  5. ENALAPRIL MALEATE [Concomitant]

REACTIONS (1)
  - EOSINOPHILIC PNEUMONIA [None]
